FAERS Safety Report 6712735-6 (Version None)
Quarter: 2010Q2

REPORT INFORMATION
  Report Type: 
  Country: None (occurrence: None)
  Receive Date: 20100506
  Receipt Date: 20100426
  Transmission Date: 20101027
  Serious: No
  Sender: FDA-Public Use
  Company Number: US-B.I. PHARMACEUTICALS,INC./RIDGEFIELD-2010-BP-03900BP

PATIENT
  Sex: Female

DRUGS (16)
  1. MIRAPEX [Suspect]
     Indication: RESTLESS LEGS SYNDROME
     Dosage: 2 MG
     Route: 048
     Dates: start: 20050101
  2. LORTAB [Concomitant]
     Indication: PAIN
     Route: 048
  3. NEXIUM [Concomitant]
     Indication: DYSPEPSIA
     Route: 048
  4. METFORMIN [Concomitant]
     Indication: DIABETES MELLITUS
     Dosage: 500 MG
     Route: 048
  5. VITAMIN D [Concomitant]
     Indication: SUPPLEMENTATION THERAPY
     Dosage: 1000 U
     Route: 048
  6. LEVOTHYROXINE SODIUM [Concomitant]
     Indication: THYROID DISORDER
     Dosage: 150
     Route: 048
  7. ASPIRIN [Concomitant]
     Dosage: 325 MG
  8. CYMBALTA [Concomitant]
     Dosage: 60
  9. BYETTA [Concomitant]
  10. OMEPRAZOLE [Concomitant]
     Dosage: 20
  11. LORAZEPAM [Concomitant]
     Dosage: 2 MG
  12. HYDROCODONE BITARTRATE [Concomitant]
     Dosage: 5/500
  13. MIRALAX [Concomitant]
  14. TUMS [Concomitant]
  15. FENOFIBRATE [Concomitant]
     Dosage: 160
  16. COMPAZINE [Concomitant]
     Dosage: 20

REACTIONS (1)
  - RESTLESS LEGS SYNDROME [None]
